FAERS Safety Report 4643501-3 (Version None)
Quarter: 2005Q2

REPORT INFORMATION
  Report Type: 
  Country: None (occurrence: None)
  Receive Date: 20050328
  Receipt Date: 20041222
  Transmission Date: 20051028
  Serious: Yes (Hospitalization)
  Sender: FDA-Public Use
  Company Number: 2004-05293

PATIENT
  Age: 75 Year
  Sex: Male
  Weight: 127 kg

DRUGS (11)
  1. OXYTROL [Suspect]
     Indication: BLADDER DISORDER
     Dosage: 1 PATCH, 2/WEEK, TRANSDERMAL
     Route: 062
     Dates: start: 20041101, end: 20041220
  2. SANCTURA [Suspect]
     Indication: BLADDER DISORDER
     Dosage: 2 TABLET, QHS, ORAL
     Route: 048
     Dates: start: 20041213, end: 20041201
  3. K-DUR 10 [Concomitant]
  4. ACTOS [Concomitant]
  5. INSULIN [Concomitant]
  6. METFORMIN HCL [Concomitant]
  7. GLIPIZIDE [Concomitant]
  8. LOTENSIN [Concomitant]
  9. LIPITOR [Concomitant]
  10. FUROSEMIDE [Concomitant]
  11. ACETYLSALICYLIC ACID SRT [Concomitant]

REACTIONS (4)
  - APPLICATION SITE ERYTHEMA [None]
  - CONSTIPATION [None]
  - DRUG INEFFECTIVE [None]
  - VISION BLURRED [None]
